FAERS Safety Report 26165432 (Version 1)
Quarter: 2025Q4

REPORT INFORMATION
  Report Type: Spontaneous
  Country: US (occurrence: None)
  Receive Date: 20251216
  Receipt Date: 20251216
  Transmission Date: 20260118
  Serious: Yes (Hospitalization)
  Sender: FDA-CTU
  Company Number: None

PATIENT
  Age: 61 Year
  Sex: Female

DRUGS (9)
  1. LENALIDOMIDE [Suspect]
     Active Substance: LENALIDOMIDE
     Indication: Plasma cell myeloma
     Dosage: TAKE 1 CAPSULE BY MOUTH DAILY FOR 21 DAYS FOLLOWED BY 7 DAYS OF
     Route: 048
     Dates: start: 20240112
  2. ASPIRIN CHW [Concomitant]
  3. BORTEZOMIB [Concomitant]
     Active Substance: BORTEZOMIB
  4. BUTALBITAL/ACETAMINOPHEN/ [Concomitant]
  5. CAL TRATE 600 CHW +D PLUS [Concomitant]
  6. DARZALEX SOL [Concomitant]
  7. DEXAMETH PHO INJ [Concomitant]
  8. DEXAMETHASON TAB [Concomitant]
  9. DIFICID [Concomitant]
     Active Substance: FIDAXOMICIN

REACTIONS (5)
  - Pneumonia [None]
  - Fatigue [None]
  - Abdominal discomfort [None]
  - Neuropathy peripheral [None]
  - Product dose omission in error [None]

NARRATIVE: CASE EVENT DATE: 20251031
